FAERS Safety Report 25816977 (Version 2)
Quarter: 2025Q3

REPORT INFORMATION
  Report Type: Spontaneous
  Country: US (occurrence: US)
  Receive Date: 20250918
  Receipt Date: 20250923
  Transmission Date: 20251020
  Serious: Yes (Other)
  Sender: REGENERON
  Company Number: US-REGENERON PHARMACEUTICALS, INC.-2025-146916

PATIENT
  Sex: Female

DRUGS (1)
  1. PRALUENT [Suspect]
     Active Substance: ALIROCUMAB
     Indication: Blood cholesterol increased
     Dosage: 150 MG, Q2W (EVERY OTHER WEEK), STRENGTH: 150 MG/ML
     Route: 058

REACTIONS (4)
  - Diabetes mellitus [Unknown]
  - Cardiac pacemaker insertion [Unknown]
  - Implantable defibrillator insertion [Unknown]
  - Hypertension [Unknown]
